FAERS Safety Report 6503311-9 (Version None)
Quarter: 2009Q4

REPORT INFORMATION
  Report Type: 
  Country: None (occurrence: None)
  Receive Date: 20091217
  Receipt Date: 20091207
  Transmission Date: 20100525
  Serious: Yes (Other)
  Sender: FDA-Public Use
  Company Number: US-PFIZER INC-2009307644

PATIENT
  Sex: Male
  Weight: 95 kg

DRUGS (2)
  1. ANSAID [Suspect]
     Indication: MYOSITIS
     Dosage: FREQUENCY: 2X/DAY,
     Route: 048
     Dates: start: 19910101
  2. SYNTHROID [Concomitant]
     Indication: THYROID DISORDER

REACTIONS (1)
  - NEOPLASM MALIGNANT [None]
